FAERS Safety Report 7459511-7 (Version None)
Quarter: 2011Q2

REPORT INFORMATION
  Report Type: 
  Country: None (occurrence: None)
  Receive Date: 20110505
  Receipt Date: 20110428
  Transmission Date: 20111010
  Serious: Yes (Other)
  Sender: FDA-Public Use
  Company Number: US-GENZYME-FABR-1001909

PATIENT
  Sex: Female
  Weight: 81.5 kg

DRUGS (2)
  1. HAEMODIALYTICS AND HAEMOFILTRATES [Concomitant]
     Indication: RENAL FAILURE
     Dosage: UNK
     Route: 010
  2. FABRAZYME [Suspect]
     Indication: FABRY'S DISEASE
     Dosage: 1 MG/KG, UNK
     Route: 042
     Dates: start: 20050125

REACTIONS (1)
  - PULMONARY EMBOLISM [None]
